FAERS Safety Report 4679135-4 (Version None)
Quarter: 2005Q2

REPORT INFORMATION
  Report Type: 
  Country: None (occurrence: None)
  Receive Date: 20050527
  Receipt Date: 20050127
  Transmission Date: 20051028
  Serious: No
  Sender: FDA-Public Use
  Company Number: PHEH2005US01360

PATIENT
  Age: 90 Year
  Sex: Male
  Weight: 74.4 kg

DRUGS (4)
  1. ZELNORM [Suspect]
     Indication: CONSTIPATION
     Dosage: 6 MG, BID, ORAL
     Route: 048
     Dates: start: 20050115
  2. ESOMEPRAZOLE (ESOMEPRAZOLE) [Concomitant]
  3. DETROL [Concomitant]
  4. TRIAMTERENE AND HYDROCHLOROTHIAZID (HYDROCHLOROTHIAZIDE, TRIAMTERENE) [Concomitant]

REACTIONS (1)
  - WEIGHT INCREASED [None]
